FAERS Safety Report 10089123 (Version 1)
Quarter: 2014Q2

REPORT INFORMATION
  Report Type: Spontaneous
  Country: US (occurrence: US)
  Receive Date: 20140421
  Receipt Date: 20140421
  Transmission Date: 20141212
  Serious: No
  Sender: FDA-Public Use
  Company Number: US-DRREDDYS-USA/USA/14/0037545

PATIENT
  Age: 44 Year
  Sex: Male
  Weight: 77.11 kg

DRUGS (1)
  1. ZENATANE [Suspect]
     Indication: ACNE
     Route: 048
     Dates: start: 20131022

REACTIONS (4)
  - Pain in extremity [Recovering/Resolving]
  - Alopecia [Recovering/Resolving]
  - Dry eye [Recovering/Resolving]
  - Back pain [Recovering/Resolving]
